FAERS Safety Report 6551823-4 (Version None)
Quarter: 2010Q1

REPORT INFORMATION
  Report Type: 
  Country: None (occurrence: None)
  Receive Date: 20100120
  Receipt Date: 20100106
  Transmission Date: 20100710
  Serious: Yes (Hospitalization)
  Sender: FDA-Public Use
  Company Number: CERZ-1001081

PATIENT
  Age: 63 Year
  Sex: Male

DRUGS (1)
  1. CEREZYME [Suspect]
     Indication: GAUCHER'S DISEASE
     Dosage: UNK, INTRAVENOUS
     Route: 042
     Dates: start: 20090501

REACTIONS (2)
  - FLUSHING [None]
  - HYPOTENSION [None]
